FAERS Safety Report 22190649 (Version 4)
Quarter: 2024Q4

REPORT INFORMATION
  Report Type: Spontaneous
  Country: US (occurrence: US)
  Receive Date: 20230410
  Receipt Date: 20241008
  Transmission Date: 20250114
  Serious: No
  Sender: NOVARTIS
  Company Number: US-002147023-NVSC2023US082199

PATIENT
  Sex: Female

DRUGS (3)
  1. DIFLUPREDNATE [Suspect]
     Active Substance: DIFLUPREDNATE
     Indication: Corneal transplant
     Dosage: UNK
     Route: 047
  2. DUREZOL [Suspect]
     Active Substance: DIFLUPREDNATE
     Indication: Transplant
     Dosage: 0.05 %, QD
     Route: 047
  3. DUREZOL [Suspect]
     Active Substance: DIFLUPREDNATE
     Dosage: 1 DOSAGE FORM, QD
     Route: 047
     Dates: start: 2012

REACTIONS (5)
  - Eye swelling [Unknown]
  - Swelling face [Unknown]
  - Urticaria [Unknown]
  - Headache [Unknown]
  - Drug hypersensitivity [Unknown]
